FAERS Safety Report 5888597-6 (Version None)
Quarter: 2008Q3

REPORT INFORMATION
  Report Type: 
  Country: None (occurrence: None)
  Receive Date: 20080918
  Receipt Date: 20080909
  Transmission Date: 20090109
  Serious: Yes (Hospitalization, Other)
  Sender: FDA-Public Use
  Company Number: US-AMGEN-QUU302911

PATIENT
  Sex: Female
  Weight: 72.6 kg

DRUGS (12)
  1. ENBREL [Suspect]
     Indication: RHEUMATOID ARTHRITIS
     Route: 058
     Dates: start: 20030101
  2. METHOTREXATE [Concomitant]
     Dates: start: 20060515
  3. ACTONEL [Concomitant]
  4. IMITREX [Concomitant]
  5. BENAZEPRIL HYDROCHLORIDE [Concomitant]
  6. HYDROCHLOROTHIAZIDE [Concomitant]
  7. PREDNISONE TAB [Concomitant]
  8. MOTRIN [Concomitant]
  9. VITAMIN TAB [Concomitant]
  10. PILOCARPINE [Concomitant]
  11. LISINOPRIL AND HYDROCHLOROTHIAZIDE [Concomitant]
  12. VITAMIN B-12 [Concomitant]

REACTIONS (17)
  - ACQUIRED OESOPHAGEAL WEB [None]
  - BREAST CANCER [None]
  - CRYOTHERAPY [None]
  - CYSTOCELE [None]
  - EROSIVE OESOPHAGITIS [None]
  - GASTRITIS EROSIVE [None]
  - GASTROENTERITIS [None]
  - HIATUS HERNIA [None]
  - INTERVERTEBRAL DISC DEGENERATION [None]
  - MACULAR DEGENERATION [None]
  - MIGRAINE [None]
  - OSTEOPENIA [None]
  - POST PROCEDURAL COMPLICATION [None]
  - SJOGREN'S SYNDROME [None]
  - TEMPOROMANDIBULAR JOINT SYNDROME [None]
  - UPPER RESPIRATORY TRACT INFECTION [None]
  - URINARY INCONTINENCE [None]
